FAERS Safety Report 13479603 (Version 1)
Quarter: 2017Q2

REPORT INFORMATION
  Report Type: Report from Study
  Country: NL (occurrence: NL)
  Receive Date: 20170425
  Receipt Date: 20170425
  Transmission Date: 20170830
  Serious: Yes (Other)
  Sender: FDA-Public Use
  Company Number: NL-ASTRAZENECA-2017SE41075

PATIENT
  Age: 68 Year
  Sex: Female

DRUGS (4)
  1. TICAGRELOR [Suspect]
     Active Substance: TICAGRELOR
     Indication: ACUTE CORONARY SYNDROME
     Route: 048
     Dates: start: 20141027, end: 20150201
  2. ACETYLSALICYLIC ACID [Suspect]
     Active Substance: ASPIRIN
     Indication: ACUTE CORONARY SYNDROME
     Dosage: NON-AZ PRODUCT, MAINTENANCE THERAPY WHICH STARTED PRIOR TO INDEX PROCEDURE
     Route: 048
     Dates: end: 20141127
  3. ACETYLSALICYLIC ACID [Suspect]
     Active Substance: ASPIRIN
     Indication: ACUTE CORONARY SYNDROME
     Dosage: NON-AZ PRODUCT, MAINTENANCE THERAPY WHICH STARTED PRIOR TO INDEX PROCEDURE
     Route: 048
     Dates: start: 20150201
  4. CLOPIDOGREL [Suspect]
     Active Substance: CLOPIDOGREL BISULFATE
     Indication: ACUTE CORONARY SYNDROME
     Route: 048
     Dates: start: 20150201

REACTIONS (2)
  - Angina pectoris [Not Recovered/Not Resolved]
  - Vascular stent restenosis [Not Recovered/Not Resolved]

NARRATIVE: CASE EVENT DATE: 20160701
